FAERS Safety Report 10399783 (Version 2)
Quarter: 2014Q3

REPORT INFORMATION
  Report Type: Spontaneous
  Country: US (occurrence: US)
  Receive Date: 20140821
  Receipt Date: 20140821
  Transmission Date: 20150326
  Serious: Yes (Hospitalization)
  Sender: FDA-Public Use
  Company Number: US-GLAXOSMITHKLINE-A0770272A

PATIENT
  Sex: Female
  Weight: 130.9 kg

DRUGS (1)
  1. AVANDARYL [Suspect]
     Active Substance: GLIMEPIRIDE\ROSIGLITAZONE MALEATE
     Indication: TYPE 2 DIABETES MELLITUS
     Route: 048
     Dates: start: 20070126, end: 200706

REACTIONS (3)
  - Myocardial infarction [Unknown]
  - Peripheral swelling [Unknown]
  - Cardiac failure congestive [Unknown]
